FAERS Safety Report 23599096 (Version 3)
Quarter: 2024Q3

REPORT INFORMATION
  Report Type: Report from Study
  Country: US (occurrence: US)
  Receive Date: 20240306
  Receipt Date: 20240725
  Transmission Date: 20241017
  Serious: No
  Sender: LUNDBECK
  Company Number: US-LUNDBECK-DKLU3074749

PATIENT

DRUGS (7)
  1. VYEPTI [Suspect]
     Active Substance: EPTINEZUMAB\EPTINEZUMAB-JJMR
     Dosage: 100 003
     Route: 041
     Dates: start: 20240221
  2. VYEPTI [Suspect]
     Active Substance: EPTINEZUMAB\EPTINEZUMAB-JJMR
     Indication: Migraine
  3. SPRAVATO [Concomitant]
     Active Substance: ESKETAMINE
     Route: 065
  4. SPRAVATO [Concomitant]
     Active Substance: ESKETAMINE
     Indication: Product used for unknown indication
  5. TORADOL [Concomitant]
     Active Substance: KETOROLAC TROMETHAMINE
     Route: 065
  6. TORADOL [Concomitant]
     Active Substance: KETOROLAC TROMETHAMINE
     Indication: Product used for unknown indication
  7. BOTOX [Concomitant]
     Active Substance: ONABOTULINUMTOXINA
     Indication: Migraine

REACTIONS (3)
  - Drug ineffective [Unknown]
  - Migraine [Recovered/Resolved]
  - Headache [Unknown]
